FAERS Safety Report 8392465 (Version 7)
Quarter: 2014Q1

REPORT INFORMATION
  Report Type: Spontaneous
  Country: US (occurrence: US)
  Receive Date: 20120206
  Receipt Date: 20140224
  Transmission Date: 20141002
  Serious: Yes (Disabling)
  Sender: FDA-Public Use
  Company Number: US-PFIZER INC-2012028583

PATIENT
  Sex: Female
  Weight: 56.69 kg

DRUGS (8)
  1. CELEBREX [Suspect]
     Indication: ARTHRITIS
     Dosage: 200 MG, 1X/DAY
     Route: 048
     Dates: end: 2011
  2. NEURONTIN [Suspect]
     Indication: NEURALGIA
     Dosage: 800 MG, 3X/DAY
     Dates: start: 201101
  3. CELECOXIB [Suspect]
     Indication: ARTHRITIS
     Dosage: UNK
  4. GABAPENTIN [Suspect]
     Indication: NERVE INJURY
     Dosage: 800 MG, 2X/DAY
  5. CITALOPRAM [Concomitant]
     Indication: DEPRESSION
     Dosage: 40 MG, DAILY
  6. SOMA [Concomitant]
     Dosage: 350 MG, UNK
  7. PRAVASTATIN [Concomitant]
     Dosage: UNK
  8. KLONOPIN [Concomitant]
     Indication: ANXIETY
     Dosage: 2 MG, 3X/DAY

REACTIONS (10)
  - Joint swelling [Not Recovered/Not Resolved]
  - Neuralgia [Not Recovered/Not Resolved]
  - Drug ineffective [Unknown]
  - Local swelling [Unknown]
  - Gait disturbance [Unknown]
  - Pain [Unknown]
  - Oedema peripheral [Not Recovered/Not Resolved]
  - Pain in extremity [Unknown]
  - Arthralgia [Unknown]
  - Blood cholesterol increased [Unknown]
